FAERS Safety Report 9066865 (Version 1)
Quarter: 2013Q1

REPORT INFORMATION
  Report Type: Report from Study
  Country: US (occurrence: US)
  Receive Date: 20130131
  Receipt Date: 20130131
  Transmission Date: 20140127
  Serious: No
  Sender: FDA-Public Use
  Company Number: US-ABBOTT-12P-163-1016166-00

PATIENT
  Age: 12 Year
  Sex: Male
  Weight: 34.05 kg

DRUGS (1)
  1. HUMIRA [Suspect]
     Indication: CROHN^S DISEASE
     Dosage: STARTED WITH LOADING DOSE
     Dates: start: 201210

REACTIONS (2)
  - Oropharyngeal pain [Recovering/Resolving]
  - Pain [Recovering/Resolving]
